FAERS Safety Report 10736535 (Version 4)
Quarter: 2015Q1

REPORT INFORMATION
  Report Type: Spontaneous
  Country: CH (occurrence: None)
  Receive Date: 20150122
  Receipt Date: 20150227
  Transmission Date: 20150721
  Serious: Yes (Other)
  Sender: FDA-Public Use
  Company Number: 20150012

PATIENT
  Age: 33 Year
  Sex: Female
  Weight: 70 kg

DRUGS (4)
  1. VENOFER [Suspect]
     Active Substance: IRON SUCROSE
     Indication: ANAEMIA
     Dosage: 1 AMPOULE UNDILUTED AT GLUTEUS INTRAMUSCULAR
     Route: 030
     Dates: start: 20141231, end: 20141231
  2. ERGOCALCIFEROL (MULTIVITAMINS) [Concomitant]
  3. LIOTHYRONINE SODIUM (T3) [Concomitant]
  4. PURAN [Concomitant]
     Active Substance: LEVOTHYROXINE SODIUM

REACTIONS (17)
  - Drug prescribing error [None]
  - Injection site induration [None]
  - Injection site inflammation [None]
  - Inflammation [None]
  - Asthenia [None]
  - Nausea [None]
  - Injection site pruritus [None]
  - Wrong drug administered [None]
  - Incorrect route of drug administration [None]
  - Swelling [None]
  - Injection site discolouration [None]
  - Diarrhoea [None]
  - Injection site swelling [None]
  - Somnolence [None]
  - Injection site pain [None]
  - Liver disorder [None]
  - Injection site mass [None]

NARRATIVE: CASE EVENT DATE: 20141231
